FAERS Safety Report 7157261-8 (Version None)
Quarter: 2010Q4

REPORT INFORMATION
  Report Type: 
  Country: None (occurrence: None)
  Receive Date: 20101130
  Receipt Date: 20101118
  Transmission Date: 20110411
  Serious: Yes (Death, Hospitalization)
  Sender: FDA-Public Use
  Company Number: 2010JP006073

PATIENT
  Age: 68 Year
  Sex: Female
  Weight: 33.8 kg

DRUGS (7)
  1. PROGRAF [Suspect]
     Indication: RHEUMATOID ARTHRITIS
     Dosage: 1 MG UID/QD, ORAL
     Route: 048
     Dates: start: 20080617, end: 20090915
  2. RHEUMATREX [Suspect]
     Indication: RHEUMATOID ARTHRITIS
     Dosage: 2 MG, 3XWEEKLY, ORAL
     Route: 048
     Dates: start: 20050401, end: 20090915
  3. MUCOSTA (REBAMAPIDE) [Concomitant]
  4. ETODOLAC [Concomitant]
  5. LANSOPRAZOLE [Concomitant]
  6. FOLIC ACID [Concomitant]
  7. RISEDRONATE SODIUM [Concomitant]

REACTIONS (4)
  - EPSTEIN-BARR VIRUS INFECTION [None]
  - LYMPHOMA [None]
  - PLEURAL EFFUSION [None]
  - RESPIRATORY FAILURE [None]
